FAERS Safety Report 23737804 (Version 2)
Quarter: 2024Q2

REPORT INFORMATION
  Report Type: Spontaneous
  Country: FR (occurrence: FR)
  Receive Date: 20240412
  Receipt Date: 20240502
  Transmission Date: 20240717
  Serious: Yes (Disabling, Other)
  Sender: FDA-Public Use
  Company Number: US-COHERUS BIOSCIENCES, Inc.-2024-COH-FR000242

PATIENT

DRUGS (18)
  1. RANIBIZUMAB [Suspect]
     Active Substance: RANIBIZUMAB
     Indication: Product used for unknown indication
     Dosage: UNK
     Dates: start: 20230629
  2. RANIBIZUMAB [Suspect]
     Active Substance: RANIBIZUMAB
     Dosage: UNK
     Dates: start: 20230727
  3. RANIBIZUMAB [Suspect]
     Active Substance: RANIBIZUMAB
     Dosage: UNK
     Dates: start: 20230824
  4. RANIBIZUMAB [Suspect]
     Active Substance: RANIBIZUMAB
     Dosage: UNK
     Dates: start: 20231005
  5. RANIBIZUMAB [Suspect]
     Active Substance: RANIBIZUMAB
     Dosage: UNK
     Dates: start: 20231116
  6. RANIBIZUMAB [Suspect]
     Active Substance: RANIBIZUMAB
     Dosage: UNK
     Dates: start: 20231228
  7. HYALURONATE SODIUM [Concomitant]
     Active Substance: HYALURONATE SODIUM
     Dosage: UNK
     Dates: start: 2016
  8. NUTROF TOTAL [Concomitant]
     Dosage: UNK
     Dates: start: 20220624
  9. VISMED MULTI [Concomitant]
     Dosage: UNK
     Dates: start: 20210319
  10. BROMAZEPAM [Concomitant]
     Active Substance: BROMAZEPAM
     Dosage: UNK UNK, BID
  11. ESOMEPRAZOLE [Concomitant]
     Active Substance: ESOMEPRAZOLE
     Dosage: UNK UNK, DAILY
  12. INDAPAMIDE\PERINDOPRIL ARGININE [Concomitant]
     Active Substance: INDAPAMIDE\PERINDOPRIL ARGININE
     Dosage: UNK, DAILY
  13. AMIODARONE HYDROCHLORIDE [Concomitant]
     Active Substance: AMIODARONE HYDROCHLORIDE
  14. PRADAXA [Concomitant]
     Active Substance: DABIGATRAN ETEXILATE MESYLATE
     Dosage: UNK, BID
  15. TAHOR [Concomitant]
     Active Substance: ATORVASTATIN CALCIUM
     Dosage: UNK, DAILY
  16. PAROXETINE HYDROCHLORIDE [Concomitant]
     Active Substance: PAROXETINE HYDROCHLORIDE\PAROXETINE HYDROCHLORIDE ANHYDROUS
     Dosage: UNK, DAILY
  17. ACETYLLEUCINE, L- [Concomitant]
     Active Substance: ACETYLLEUCINE, L-
  18. LOMEXIN-T [Concomitant]

REACTIONS (1)
  - Macular degeneration [Not Recovered/Not Resolved]
